FAERS Safety Report 5968451-1 (Version None)
Quarter: 2008Q4

REPORT INFORMATION
  Report Type: 
  Country: None (occurrence: None)
  Receive Date: 20081126
  Receipt Date: 20081121
  Transmission Date: 20090506
  Serious: Yes (Other)
  Sender: FDA-Public Use
  Company Number: US-ASTRAZENECA-2008UW26109

PATIENT
  Age: 60 Year
  Sex: Male
  Weight: 59 kg

DRUGS (9)
  1. ATENOLOL [Suspect]
     Indication: CARDIOVASCULAR EVENT PROPHYLAXIS
     Dosage: 50 MG (2 TABLETS) BID
     Route: 048
     Dates: start: 19991001
  2. PLAVIX [Interacting]
     Indication: MYOCARDIAL INFARCTION
     Route: 048
     Dates: start: 20010205, end: 20010329
  3. PLAVIX [Interacting]
     Indication: FAMILIAL TREMOR
     Route: 048
     Dates: start: 20010205, end: 20010329
  4. PHENYTOIN [Concomitant]
     Indication: CONVULSION
  5. LOVASTATIN [Concomitant]
     Indication: CARDIOVASCULAR EVENT PROPHYLAXIS
     Route: 048
     Dates: start: 19991001
  6. LAMOTRIGINE [Concomitant]
     Indication: CONVULSION
     Route: 048
  7. NITROGLYCERIN [Concomitant]
     Indication: CHEST PAIN
     Route: 061
  8. TAMSULOSIN HCL [Concomitant]
     Indication: PROSTATOMEGALY
  9. ASPIRIN [Concomitant]
     Indication: CEREBROVASCULAR ACCIDENT
     Route: 048
     Dates: start: 19990101

REACTIONS (18)
  - ABDOMINAL DISCOMFORT [None]
  - AMNESIA [None]
  - ANGIOEDEMA [None]
  - ANTICONVULSANT DRUG LEVEL ABNORMAL [None]
  - ASTHENIA [None]
  - BLOOD PRESSURE INCREASED [None]
  - CHEST PAIN [None]
  - CONVULSION [None]
  - DRUG INTERACTION [None]
  - DYSPNOEA [None]
  - FATIGUE [None]
  - FEELING OF BODY TEMPERATURE CHANGE [None]
  - HYPOAESTHESIA [None]
  - INSOMNIA [None]
  - MYALGIA [None]
  - NIGHT SWEATS [None]
  - PAIN OF SKIN [None]
  - PARAESTHESIA [None]
